FAERS Safety Report 18714565 (Version 6)
Quarter: 2022Q3

REPORT INFORMATION
  Report Type: Report from Study
  Country: BR (occurrence: BR)
  Receive Date: 20210108
  Receipt Date: 20220914
  Transmission Date: 20221027
  Serious: Yes (Hospitalization, Other)
  Sender: FDA-Public Use
  Company Number: BR-BRISTOL-MYERS SQUIBB COMPANY-BMS-2021-000003

PATIENT
  Age: 70 Year
  Sex: Male
  Weight: 78 kg

DRUGS (13)
  1. IPILIMUMAB [Suspect]
     Active Substance: IPILIMUMAB
     Indication: Hepatocellular carcinoma
     Dosage: MOST RECENT DOSE WAS RECEIVED ON 13-OCT-2020
     Route: 042
     Dates: start: 20200922
  2. LACOSAMIDE [Concomitant]
     Active Substance: LACOSAMIDE
     Indication: Hepatic encephalopathy
     Dosage: 400 MILLIGRAM
     Route: 048
     Dates: start: 20201207
  3. INDAPAMIDE [Concomitant]
     Active Substance: INDAPAMIDE
     Indication: Product used for unknown indication
     Dosage: 2.5 MILLIGRAM
     Route: 048
     Dates: start: 2011
  4. LACTULOSE [Concomitant]
     Active Substance: LACTULOSE
     Indication: Hepatic encephalopathy
     Dosage: 1 DOSAGE FORM= 60 UNITS NOT SPECIFIED
     Route: 048
     Dates: start: 20201117, end: 20210221
  5. LACTULOSE [Concomitant]
     Active Substance: LACTULOSE
     Dosage: 1 DOSAGE FORM= 80 UNITS NOT SPECIFIED
     Route: 048
     Dates: start: 20201208
  6. CLOBAZAM [Concomitant]
     Active Substance: CLOBAZAM
     Indication: Hepatic encephalopathy
     Dosage: 10 MILLIGRAM
     Route: 048
     Dates: start: 20201118, end: 20201231
  7. TRAZODONE [Concomitant]
     Active Substance: TRAZODONE HYDROCHLORIDE
     Indication: Product used for unknown indication
     Dosage: 50 MILLIGRAM
     Route: 048
     Dates: start: 20201122, end: 20210213
  8. ATENOLOL [Concomitant]
     Active Substance: ATENOLOL
     Indication: Product used for unknown indication
     Dosage: 50 MILLIGRAM
     Route: 048
     Dates: start: 2011
  9. PREDNISONE [Concomitant]
     Active Substance: PREDNISONE
     Indication: Product used for unknown indication
     Dosage: 80 MILLIGRAM
     Route: 048
     Dates: start: 20201212, end: 20201230
  10. PREDNISONE [Concomitant]
     Active Substance: PREDNISONE
     Dosage: 40 MILLIGRAM
     Route: 048
     Dates: start: 20201231, end: 20201231
  11. LEVOFLOXACIN [Concomitant]
     Active Substance: LEVOFLOXACIN
     Indication: Product used for unknown indication
     Dosage: 750 MILLIGRAM
     Route: 048
     Dates: start: 20201230, end: 20201231
  12. METRONIDAZOLE [Concomitant]
     Active Substance: METRONIDAZOLE
     Indication: Product used for unknown indication
     Dosage: 400 MILLIGRAM
     Route: 048
     Dates: start: 20201231, end: 20210110
  13. METHYLPREDNISOLONE [Concomitant]
     Active Substance: METHYLPREDNISOLONE
     Indication: Hepatic encephalopathy
     Dosage: 80 MILLIGRAM
     Route: 042
     Dates: start: 20201231, end: 20210103

REACTIONS (1)
  - Pulmonary sepsis [Recovered/Resolved]

NARRATIVE: CASE EVENT DATE: 20201231
